APPROVED DRUG PRODUCT: DIMETANE
Active Ingredient: BROMPHENIRAMINE MALEATE
Strength: 4MG
Dosage Form/Route: TABLET;ORAL
Application: N010799 | Product #003
Applicant: WYETH CONSUMER HEALTHCARE
Approved: Approved Prior to Jan 1, 1982 | RLD: No | RS: No | Type: DISCN